FAERS Safety Report 13669335 (Version 2)
Quarter: 2017Q3

REPORT INFORMATION
  Report Type: Report from Study
  Country: US (occurrence: US)
  Receive Date: 20170620
  Receipt Date: 20170824
  Transmission Date: 20171127
  Serious: No
  Sender: FDA-Public Use
  Company Number: PHHY2016US113074

PATIENT
  Age: 28 Year
  Sex: Male

DRUGS (1)
  1. GILENYA [Suspect]
     Active Substance: FINGOLIMOD HYDROCHLORIDE
     Indication: MULTIPLE SCLEROSIS
     Dosage: UNK, QD
     Route: 048

REACTIONS (12)
  - Tremor [Unknown]
  - Depression [Unknown]
  - Non-cardiac chest pain [Recovered/Resolved]
  - Insomnia [Unknown]
  - Eye pain [Unknown]
  - Photosensitivity reaction [Unknown]
  - White blood cell count decreased [Unknown]
  - Headache [Unknown]
  - Paraesthesia [Recovered/Resolved]
  - Blood bilirubin increased [Unknown]
  - Adjustment disorder with anxiety [Unknown]
  - Memory impairment [Unknown]

NARRATIVE: CASE EVENT DATE: 20160622
